FAERS Safety Report 6669296-X (Version None)
Quarter: 2010Q2

REPORT INFORMATION
  Report Type: 
  Country: None (occurrence: None)
  Receive Date: 20100406
  Receipt Date: 20100326
  Transmission Date: 20101027
  Serious: Yes (Hospitalization)
  Sender: FDA-Public Use
  Company Number: RO-JNJFOC-20100301113

PATIENT
  Sex: Male

DRUGS (2)
  1. REMICADE [Suspect]
     Indication: PSORIASIS
     Route: 042
     Dates: start: 20090925, end: 20091109
  2. MEGUAN [Concomitant]
     Indication: TYPE 2 DIABETES MELLITUS

REACTIONS (2)
  - DISSEMINATED TUBERCULOSIS [None]
  - PLEURISY [None]
